FAERS Safety Report 4619862-8 (Version None)
Quarter: 2005Q1

REPORT INFORMATION
  Report Type: 
  Country: None (occurrence: None)
  Receive Date: 20050328
  Receipt Date: 20050316
  Transmission Date: 20050727
  Serious: Yes (Life-Threatening, Hospitalization, Other)
  Sender: FDA-Public Use
  Company Number: US-JNJFOC-20050205744

PATIENT
  Age: 42 Year
  Sex: Female

DRUGS (2)
  1. REMICADE [Suspect]
     Indication: AUTOIMMUNE DISORDER
     Route: 042
  2. PREDNISONE [Suspect]
     Indication: DRUG USE FOR UNKNOWN INDICATION
     Dosage: LOW DOSE

REACTIONS (4)
  - ABDOMINAL ABSCESS [None]
  - IMMUNOSUPPRESSION [None]
  - NECROTISING FASCIITIS [None]
  - POSTOPERATIVE INFECTION [None]
